FAERS Safety Report 8987906 (Version 2)
Quarter: 2013Q1

REPORT INFORMATION
  Report Type: Spontaneous
  Country: JP (occurrence: JP)
  Receive Date: 20121227
  Receipt Date: 20130117
  Transmission Date: 20140127
  Serious: Yes (Other)
  Sender: FDA-Public Use
  Company Number: JP-GLAXOSMITHKLINE-B0854608A

PATIENT
  Age: 75 Year
  Sex: Male

DRUGS (4)
  1. REQUIP [Suspect]
     Indication: PRODUCT USED FOR UNKNOWN INDICATION
     Route: 048
  2. REQUIP [Suspect]
     Indication: PRODUCT USED FOR UNKNOWN INDICATION
     Route: 048
  3. LEVODOPA [Concomitant]
     Route: 048
  4. UNKNOWN DRUG [Concomitant]
     Route: 065

REACTIONS (1)
  - Akinesia [Unknown]
